FAERS Safety Report 16953770 (Version 1)
Quarter: 2019Q4

REPORT INFORMATION
  Report Type: Spontaneous
  Country: US (occurrence: US)
  Receive Date: 20191023
  Receipt Date: 20191023
  Transmission Date: 20200122
  Serious: No
  Sender: FDA-Public Use
  Company Number: US-TEVA-2019-US-1124729

PATIENT
  Sex: Female

DRUGS (1)
  1. PRAVASTATIN. [Suspect]
     Active Substance: PRAVASTATIN
     Indication: BLOOD CHOLESTEROL
     Dosage: 80 MILLIGRAM DAILY;
     Route: 065
     Dates: start: 2017

REACTIONS (1)
  - Rash [Unknown]

NARRATIVE: CASE EVENT DATE: 201909
